FAERS Safety Report 22386227 (Version 1)
Quarter: 2023Q2

REPORT INFORMATION
  Report Type: Report from Study
  Country: ZA (occurrence: None)
  Receive Date: 20230530
  Receipt Date: 20230530
  Transmission Date: 20230722
  Serious: Yes (Hospitalization)
  Sender: FDA-Public Use
  Company Number: 2023A123101

PATIENT
  Age: 44 Year
  Sex: Female

DRUGS (2)
  1. BUDESONIDE\FORMOTEROL [Suspect]
     Active Substance: BUDESONIDE\FORMOTEROL
     Indication: Asthma
     Dosage: 160 UG/INHAL UNKNOWN
     Route: 055
  2. ASTHAVENT ECOHALER [Concomitant]
     Indication: Asthma
     Dosage: 200 DOSE100UG/INHAL
     Route: 055

REACTIONS (1)
  - Gastric disorder [Unknown]
